FAERS Safety Report 4917632-4 (Version None)
Quarter: 2006Q1

REPORT INFORMATION
  Report Type: 
  Country: None (occurrence: None)
  Receive Date: 20060221
  Receipt Date: 20060202
  Transmission Date: 20060701
  Serious: Yes (Hospitalization, Disabling)
  Sender: FDA-Public Use
  Company Number: US-MERCK-0602USA01747

PATIENT
  Sex: Male
  Weight: 77 kg

DRUGS (1)
  1. VIOXX [Suspect]
     Indication: ARTHRITIS
     Route: 048
     Dates: start: 20010129, end: 20040901

REACTIONS (4)
  - CARDIAC DISORDER [None]
  - DYSPNOEA [None]
  - LOWER LIMB FRACTURE [None]
  - MYOCARDIAL INFARCTION [None]
